FAERS Safety Report 15689644 (Version 1)
Quarter: 2018Q4

REPORT INFORMATION
  Report Type: Spontaneous
  Country: US (occurrence: US)
  Receive Date: 20181204
  Receipt Date: 20181204
  Transmission Date: 20190205
  Serious: Yes (Other)
  Sender: FDA-Public Use
  Company Number: None

PATIENT
  Age: 53 Year
  Sex: Female
  Weight: 54 kg

DRUGS (4)
  1. VITAMIN B [Concomitant]
     Active Substance: VITAMIN B
  2. LOPREESA [Concomitant]
  3. MIMVEY [Suspect]
     Active Substance: ESTRADIOL\NORETHINDRONE ACETATE
     Indication: MENOPAUSAL SYMPTOMS
     Dosage: ?          QUANTITY:28 TABLET(S);?
     Route: 048
     Dates: start: 20180701, end: 20180930
  4. FLAX SEED OIL CAPS [Concomitant]

REACTIONS (4)
  - Drug ineffective [None]
  - Loss of personal independence in daily activities [None]
  - Blood test abnormal [None]
  - Menopausal symptoms [None]

NARRATIVE: CASE EVENT DATE: 20181001
